FAERS Safety Report 13707377 (Version 1)
Quarter: 2017Q2

REPORT INFORMATION
  Report Type: Spontaneous
  Country: US (occurrence: US)
  Receive Date: 20170630
  Receipt Date: 20170630
  Transmission Date: 20170830
  Serious: Yes (Hospitalization)
  Sender: FDA-Public Use
  Company Number: US-SA-2017SA114117

PATIENT
  Sex: Male

DRUGS (1)
  1. LOVENOX [Suspect]
     Active Substance: ENOXAPARIN SODIUM
     Route: 065

REACTIONS (5)
  - Ruptured cerebral aneurysm [Unknown]
  - Altered state of consciousness [Unknown]
  - Pulmonary embolism [Unknown]
  - Cerebral haemorrhage [Unknown]
  - Coma [Unknown]
